FAERS Safety Report 11393167 (Version 1)
Quarter: 2015Q3

REPORT INFORMATION
  Report Type: Spontaneous
  Country: US (occurrence: US)
  Receive Date: 20150818
  Receipt Date: 20150818
  Transmission Date: 20151125
  Serious: No
  Sender: FDA-Public Use
  Company Number: CHPA2015US009747

PATIENT
  Age: 47 Year
  Sex: Female

DRUGS (1)
  1. VOLTAREN [Suspect]
     Active Substance: DICLOFENAC SODIUM
     Indication: VULVOVAGINAL DISCOMFORT
     Dosage: 2 G, ONCE/SINGLE
     Route: 067
     Dates: start: 20150818, end: 20150818

REACTIONS (3)
  - Inappropriate schedule of drug administration [Unknown]
  - Skin burning sensation [Not Recovered/Not Resolved]
  - Product use issue [Unknown]

NARRATIVE: CASE EVENT DATE: 20150818
